FAERS Safety Report 9044293 (Version 1)
Quarter: 2013Q1

REPORT INFORMATION
  Report Type: Spontaneous
  Country: HU (occurrence: HU)
  Receive Date: 20130131
  Receipt Date: 20130131
  Transmission Date: 20140127
  Serious: Yes (Other)
  Sender: FDA-Public Use
  Company Number: HU-BIOGENIDEC-2012BI041979

PATIENT
  Sex: Female

DRUGS (6)
  1. AVONEX [Suspect]
     Indication: MULTIPLE SCLEROSIS
     Route: 030
  2. AVONEX [Suspect]
     Indication: MULTIPLE SCLEROSIS
     Route: 030
     Dates: start: 20120801
  3. METOTHYRIN [Concomitant]
  4. RIVOTRIL [Concomitant]
  5. STAZEPINE [Concomitant]
  6. BACLOFEN [Concomitant]
     Indication: MULTIPLE SCLEROSIS

REACTIONS (5)
  - Abdominal pain upper [Not Recovered/Not Resolved]
  - Neuromyopathy [Not Recovered/Not Resolved]
  - Influenza like illness [Not Recovered/Not Resolved]
  - Myalgia [Not Recovered/Not Resolved]
  - Arthralgia [Not Recovered/Not Resolved]
